FAERS Safety Report 21920509 (Version 1)
Quarter: 2023Q1

REPORT INFORMATION
  Report Type: Report from Study
  Country: US (occurrence: US)
  Receive Date: 20230127
  Receipt Date: 20230127
  Transmission Date: 20230418
  Serious: Yes (Death)
  Sender: FDA-Public Use
  Company Number: US-ABBVIE-4284654

PATIENT
  Age: 83 Year
  Sex: Male

DRUGS (5)
  1. SYNTHROID [Suspect]
     Active Substance: LEVOTHYROXINE SODIUM
     Indication: Hypothyroidism
     Route: 048
  2. JANUVIA [Concomitant]
     Active Substance: SITAGLIPTIN PHOSPHATE
     Indication: Product used for unknown indication
  3. Prandie [Concomitant]
     Indication: Product used for unknown indication
  4. ACTOS [Concomitant]
     Active Substance: PIOGLITAZONE HYDROCHLORIDE
     Indication: Product used for unknown indication
  5. METOPROLOL [Concomitant]
     Active Substance: METOPROLOL
     Indication: Product used for unknown indication

REACTIONS (2)
  - Lung neoplasm malignant [Fatal]
  - Hepatic cancer [Fatal]

NARRATIVE: CASE EVENT DATE: 20221101
